FAERS Safety Report 19567368 (Version 4)
Quarter: 2022Q1

REPORT INFORMATION
  Report Type: Other
  Country: US (occurrence: None)
  Receive Date: 20210716
  Receipt Date: 20220317
  Transmission Date: 20220423
  Serious: Yes (Hospitalization, Disabling, Other)
  Sender: FDA-Public Use
  Company Number: US-ROCHE-2869367

PATIENT
  Age: 49 Year
  Sex: Male
  Weight: 179.33 kg

DRUGS (4)
  1. OCREVUS [Suspect]
     Active Substance: OCRELIZUMAB
     Indication: Relapsing-remitting multiple sclerosis
     Dosage: DATE OF TREATMENT: 12/APR/2019, 26/APR/2019, 27/SEP/2019, 28/AUG/2020, 13/MAR/2020, 14/MAY/2021, 17/
     Route: 042
     Dates: start: 20190421
  2. OCREVUS [Suspect]
     Active Substance: OCRELIZUMAB
     Route: 042
     Dates: start: 201810
  3. COVID-19 VACCINE [Concomitant]
     Dates: start: 20210111
  4. MODERNA COVID-19 VACCINE [Concomitant]
     Active Substance: ELASOMERAN

REACTIONS (5)
  - COVID-19 pneumonia [Recovered/Resolved with Sequelae]
  - Pulmonary embolism [Recovered/Resolved]
  - Headache [Unknown]
  - COVID-19 [Unknown]
  - Pain in extremity [Unknown]

NARRATIVE: CASE EVENT DATE: 20210201
